FAERS Safety Report 9154850 (Version 1)
Quarter: 2013Q1

REPORT INFORMATION
  Report Type: Report from Study
  Country: JP (occurrence: JP)
  Receive Date: 20130311
  Receipt Date: 20130311
  Transmission Date: 20140127
  Serious: Yes (Hospitalization, Other)
  Sender: FDA-Public Use
  Company Number: PHHY2012JP074869

PATIENT
  Age: 19 Year
  Sex: Male

DRUGS (4)
  1. FTY 720 [Suspect]
     Indication: MULTIPLE SCLEROSIS
     Dosage: 0.5 MG, QD
     Route: 048
     Dates: start: 20120322, end: 20120427
  2. TEGRETOL [Concomitant]
     Dosage: 300 MG, DAILY
     Route: 048
  3. METHYCOBAL [Concomitant]
     Dosage: 1000 UG, DAILY
     Route: 048
  4. GABAPEN [Concomitant]
     Dosage: 1200 MG, DAILY
     Route: 048

REACTIONS (1)
  - Toxic skin eruption [Recovered/Resolved]
